FAERS Safety Report 13631319 (Version 1)
Quarter: 2017Q2

REPORT INFORMATION
  Report Type: Spontaneous
  Country: US (occurrence: US)
  Receive Date: 20170608
  Receipt Date: 20170608
  Transmission Date: 20170830
  Serious: Yes (Hospitalization, Other)
  Sender: FDA-Public Use
  Company Number: US-ALLERGAN-1723099US

PATIENT
  Age: 36 Year
  Sex: Female

DRUGS (1)
  1. LEXAPRO [Suspect]
     Active Substance: ESCITALOPRAM OXALATE
     Indication: PRODUCT USED FOR UNKNOWN INDICATION
     Dosage: 10 MG, QD
     Route: 048

REACTIONS (6)
  - Postoperative wound complication [Unknown]
  - Menorrhagia [Unknown]
  - Drug ineffective [Unknown]
  - Hospitalisation [Unknown]
  - Stress [Unknown]
  - Pain [Unknown]
